FAERS Safety Report 6469027 (Version 6)
Quarter: 2012Q4

REPORT INFORMATION
  Report Type: 
  Country: CA (occurrence: CA)
  Receive Date: 20071115
  Receipt Date: 20121109
  Transmission Date: 20130627
  Serious: Yes (Death, Hospitalization, Other)
  Sender: FDA-Public Use
  Company Number: PHMT2006CA00944

PATIENT
  Sex: Male

DRUGS (5)
  1. SANDOSTATIN LAR [Suspect]
     Indication: CARCINOID TUMOUR
     Dosage: 30 mg, UNK
     Route: 030
     Dates: start: 20051223
  2. SANDOSTATIN LAR [Suspect]
     Dosage: 20 mg, QMO
     Route: 030
     Dates: start: 20051229, end: 20060322
  3. SANDOSTATIN LAR [Suspect]
     Dosage: 30mg every 4 weeks
     Dates: start: 20060323
  4. SANDOSTATIN LAR [Suspect]
     Dosage: 20 mg, every 4 weeks
     Route: 030
     Dates: start: 20071212
  5. INSULIN [Concomitant]

REACTIONS (24)
  - Death [Fatal]
  - Cholelithiasis [Recovering/Resolving]
  - Jaundice [Unknown]
  - Yellow skin [Unknown]
  - Fatigue [Unknown]
  - Bile duct obstruction [Unknown]
  - Malignant neoplasm progression [Unknown]
  - Influenza [Unknown]
  - Anxiety [Unknown]
  - Weight decreased [Unknown]
  - Costovertebral angle tenderness [Unknown]
  - Pyrexia [Unknown]
  - Cough [Unknown]
  - Influenza like illness [Unknown]
  - Blood pressure increased [Unknown]
  - Abdominal distension [Unknown]
  - Decreased appetite [Unknown]
  - Diarrhoea [Unknown]
  - Injection site discomfort [Unknown]
  - Hyperglycaemia [Unknown]
  - Blood glucose increased [Unknown]
  - Asthenia [Not Recovered/Not Resolved]
  - Tachycardia [Unknown]
  - Heart rate increased [Unknown]
